FAERS Safety Report 18135300 (Version 1)
Quarter: 2020Q3

REPORT INFORMATION
  Report Type: Spontaneous
  Country: US (occurrence: US)
  Receive Date: 20200811
  Receipt Date: 20200811
  Transmission Date: 20201103
  Serious: No
  Sender: FDA-Public Use
  Company Number: NVSC2020US216550

PATIENT
  Sex: Female

DRUGS (1)
  1. ZARXIO [Suspect]
     Active Substance: FILGRASTIM-SNDZ
     Indication: BREAST CANCER
     Dosage: 480 MG, QD (7 DAYS), 24 TO 72 HOURS AFTER EACH 14
     Route: 058
     Dates: start: 20200730

REACTIONS (1)
  - Chest discomfort [Unknown]
